FAERS Safety Report 9201251 (Version 3)
Quarter: 2013Q2

REPORT INFORMATION
  Report Type: Spontaneous
  Country: US (occurrence: None)
  Receive Date: 20130327
  Receipt Date: 20130415
  Transmission Date: 20140414
  Serious: Yes (Hospitalization)
  Sender: FDA-Public Use
  Company Number: UTC-030352

PATIENT
  Age: 64 Year
  Sex: Male

DRUGS (8)
  1. TYVASO [Suspect]
     Indication: PULMONARY ARTERIAL HYPERTENSION
     Dosage: 216 MCG (54 MCG, 4 IN 1 D) INHALATION
     Route: 055
     Dates: start: 20130131, end: 2013
  2. LETAIRIS [Suspect]
     Indication: PRODUCT USED FOR UNKNOWN INDICATION
     Dosage: 5MG (5MG, 1 IN 1D)
     Dates: start: 20130214
  3. ADCIRCA (TADALAFIL) [Concomitant]
  4. SINGULAIR [Concomitant]
  5. MODAFINIL [Concomitant]
  6. POTASSIUM [Concomitant]
  7. FUROSEMIDE [Concomitant]
  8. COUMADIN (WARFARIN SODIUM) [Concomitant]

REACTIONS (1)
  - Atrial fibrillation [None]
